FAERS Safety Report 15355838 (Version 1)
Quarter: 2018Q3

REPORT INFORMATION
  Report Type: Spontaneous
  Country: GB (occurrence: GB)
  Receive Date: 20180906
  Receipt Date: 20180906
  Transmission Date: 20181010
  Serious: Yes (Other)
  Sender: FDA-Public Use
  Company Number: GB-TEVA-2018-GB-951907

PATIENT
  Age: 27 Year
  Sex: Male
  Weight: 52 kg

DRUGS (4)
  1. CODEINE PHOSPHATE [Concomitant]
     Active Substance: CODEINE PHOSPHATE
     Indication: PAIN
     Dosage: TAKE ONE TABLET UP TO FOUR TIMES DAILY.
     Route: 065
     Dates: start: 20180627, end: 20180725
  2. NAPROXEN. [Concomitant]
     Active Substance: NAPROXEN
     Dosage: 2 DOSAGE FORMS DAILY; TAKE WITH FOOD.
     Route: 065
     Dates: start: 20180627, end: 20180711
  3. MIRTAZAPINE. [Suspect]
     Active Substance: MIRTAZAPINE
     Indication: ANXIETY
     Dosage: 30 MILLIGRAM DAILY;
     Route: 065
     Dates: start: 20180731
  4. SALBUTAMOL [Concomitant]
     Active Substance: ALBUTEROL
     Dosage: 2 PUFFS FOUR TIMES A DAY AS REQUIRED
     Route: 055
     Dates: start: 20140930

REACTIONS (1)
  - Bronchospasm [Recovered/Resolved]

NARRATIVE: CASE EVENT DATE: 20180801
